FAERS Safety Report 4678412-0 (Version None)
Quarter: 2005Q2

REPORT INFORMATION
  Report Type: 
  Country: None (occurrence: None)
  Receive Date: 20050527
  Receipt Date: 20050523
  Transmission Date: 20051028
  Serious: Yes (Other)
  Sender: FDA-Public Use
  Company Number: 141498USA

PATIENT
  Sex: Female

DRUGS (6)
  1. COPAXONE [Suspect]
     Indication: MULTIPLE SCLEROSIS
     Dosage: 20 MILLIGRAM SUBCUTANEOUS
     Route: 058
     Dates: start: 20020101, end: 20030101
  2. COPAXONE [Suspect]
     Indication: MULTIPLE SCLEROSIS
     Dosage: 20 MILLIGRAM QW SUBCUTANEOUS
     Route: 058
     Dates: start: 20040101, end: 20040901
  3. WELLBUTRIN [Concomitant]
  4. ZOLOFT [Concomitant]
  5. PREVACID [Concomitant]
  6. LIPITOR [Concomitant]

REACTIONS (5)
  - CEREBRAL ARTERITIS [None]
  - EYE PAIN [None]
  - HEADACHE [None]
  - POLYMYALGIA RHEUMATICA [None]
  - PYREXIA [None]
